FAERS Safety Report 7359379-3 (Version None)
Quarter: 2011Q1

REPORT INFORMATION
  Report Type: 
  Country: None (occurrence: None)
  Receive Date: 20110317
  Receipt Date: 20110307
  Transmission Date: 20110831
  Serious: Yes (Death, Hospitalization)
  Sender: FDA-Public Use
  Company Number: US-ACTELION-A-NJ2011-45784

PATIENT

DRUGS (2)
  1. WARFARIN SODIUM [Concomitant]
  2. TRACLEER [Suspect]
     Indication: PULMONARY ARTERIAL HYPERTENSION
     Dosage: UNK
     Route: 048
     Dates: start: 20090902, end: 20110303

REACTIONS (7)
  - SEPSIS [None]
  - EPISTAXIS [None]
  - ASPIRATION [None]
  - RESPIRATORY DISTRESS [None]
  - MECHANICAL VENTILATION [None]
  - MULTI-ORGAN FAILURE [None]
  - DEATH [None]
